FAERS Safety Report 9215924 (Version 1)
Quarter: 2013Q2

REPORT INFORMATION
  Report Type: Spontaneous
  Country: US (occurrence: None)
  Receive Date: 20130404
  Receipt Date: 20130404
  Transmission Date: 20140414
  Serious: Yes (Hospitalization, Other)
  Sender: FDA-Public Use
  Company Number: JPI-P-030903

PATIENT
  Age: 74 Year
  Sex: Male

DRUGS (1)
  1. XYREM (500 MILLIGRAM/MILLILITERS, SOLUTION)(SODIUM OXYBATE) [Suspect]
     Indication: PRODUCT USED FOR UNKNOWN INDICATION
     Dosage: (2.5 GM, 2 IN 1 D)
     Route: 048
     Dates: start: 20040824

REACTIONS (5)
  - Ulcer haemorrhage [None]
  - Haematemesis [None]
  - Back pain [None]
  - Red blood cell count decreased [None]
  - Arthritis [None]
